FAERS Safety Report 5041345-4 (Version None)
Quarter: 2006Q2

REPORT INFORMATION
  Report Type: 
  Country: None (occurrence: None)
  Receive Date: 20060626
  Receipt Date: 20060619
  Transmission Date: 20061013
  Serious: Yes (Hospitalization)
  Sender: FDA-Public Use
  Company Number: 225178

PATIENT
  Age: 69 Year
  Sex: Male
  Weight: 70.4 kg

DRUGS (4)
  1. ERLOTINIB (ERLOTINIB) TABLET [Suspect]
     Indication: NON-SMALL CELL LUNG CANCER
  2. AVASTIN [Suspect]
     Indication: NON-SMALL CELL LUNG CANCER
     Dosage: 15 MG/M2, Q3W, INTRAVENOUS
     Route: 042
     Dates: start: 20060412
  3. CARBOPLATIN [Suspect]
     Indication: NON-SMALL CELL LUNG CANCER
     Dosage: 3 AUC, Q3W, INTRAVENOUS
     Route: 042
     Dates: start: 20060412
  4. TAXOL [Suspect]
     Indication: NON-SMALL CELL LUNG CANCER
     Dosage: 100 MG/M2, INTRAVENOUS
     Route: 042
     Dates: start: 20060412

REACTIONS (2)
  - CYANOSIS [None]
  - PERIPHERAL ARTERIAL OCCLUSIVE DISEASE [None]
